FAERS Safety Report 19821549 (Version 1)
Quarter: 2021Q3

REPORT INFORMATION
  Report Type: Spontaneous
  Country: US (occurrence: US)
  Receive Date: 20210909
  Receipt Date: 20210909
  Transmission Date: 20211014
  Serious: Yes (Life-Threatening)
  Sender: FDA-Public Use
  Company Number: None

PATIENT
  Age: 72 Year
  Sex: Female
  Weight: 59.87 kg

DRUGS (14)
  1. FUROSEMID [Concomitant]
     Active Substance: FUROSEMIDE
  2. MAGNEISUM TAURATE [Concomitant]
  3. BEET ROOT EXTRACT [Concomitant]
  4. B COMPLEC [Concomitant]
  5. VITAMIN C [Concomitant]
     Active Substance: ASCORBIC ACID
  6. DOTAREM [Suspect]
     Active Substance: GADOTERATE MEGLUMINE
     Indication: MAGNETIC RESONANCE IMAGING
     Dates: start: 20210225, end: 20210225
  7. COQ10/RESERVATROL/VITAMIN D3/K2 [Concomitant]
  8. LIQUID MULTIVITAMIN [Concomitant]
  9. BENADRYL [Concomitant]
     Active Substance: DIPHENHYDRAMINE HYDROCHLORIDE
  10. MULTIPLE VIATMINS [Concomitant]
  11. SYNTHROID [Concomitant]
     Active Substance: LEVOTHYROXINE SODIUM
  12. FLUCONAZOLE. [Concomitant]
     Active Substance: FLUCONAZOLE
  13. QUERCITIN WITH VIT C AND BROMELAIN [Concomitant]
  14. H.C.L. [Concomitant]

REACTIONS (22)
  - Skin induration [None]
  - Cognitive disorder [None]
  - Skin texture abnormal [None]
  - Blindness [None]
  - Tendon disorder [None]
  - Bone pain [None]
  - Disturbance in attention [None]
  - Skin hypertrophy [None]
  - Pain of skin [None]
  - Adverse reaction [None]
  - Deafness [None]
  - Injection site swelling [None]
  - Pain [None]
  - Muscle disorder [None]
  - Mobility decreased [None]
  - Gadolinium deposition disease [None]
  - Headache [None]
  - Tendon rupture [None]
  - Ligament disorder [None]
  - Sensory disturbance [None]
  - Arthralgia [None]
  - Paralysis [None]

NARRATIVE: CASE EVENT DATE: 20210225
